FAERS Safety Report 12719728 (Version 1)
Quarter: 2016Q3

REPORT INFORMATION
  Report Type: Spontaneous
  Country: US (occurrence: US)
  Receive Date: 20160907
  Receipt Date: 20160907
  Transmission Date: 20161109
  Serious: No
  Sender: FDA-Public Use
  Company Number: US-JNJFOC-20160702495

PATIENT
  Age: 41 Year
  Sex: Female
  Weight: 65.77 kg

DRUGS (2)
  1. LEVAQUIN [Suspect]
     Active Substance: LEVOFLOXACIN
     Indication: PHARYNGITIS STREPTOCOCCAL
     Dosage: 500 MG OR 850 MG
     Route: 048
     Dates: start: 20160507, end: 20160514
  2. LEVAQUIN [Suspect]
     Active Substance: LEVOFLOXACIN
     Indication: MIDDLE EAR EFFUSION
     Dosage: 500 MG OR 850 MG
     Route: 048
     Dates: start: 20160507, end: 20160514

REACTIONS (7)
  - Pain [Unknown]
  - Paraesthesia [Not Recovered/Not Resolved]
  - Arthralgia [Not Recovered/Not Resolved]
  - Tendon rupture [Not Recovered/Not Resolved]
  - Hypokinesia [Unknown]
  - Fibromyalgia [Not Recovered/Not Resolved]
  - Bedridden [Unknown]

NARRATIVE: CASE EVENT DATE: 20160507
